FAERS Safety Report 17543087 (Version 14)
Quarter: 2021Q3

REPORT INFORMATION
  Report Type: Spontaneous
  Country: JP (occurrence: JP)
  Receive Date: 20200316
  Receipt Date: 20210915
  Transmission Date: 20211014
  Serious: Yes (Hospitalization, Other)
  Sender: FDA-Public Use
  Company Number: JP-AMGEN-JPNSP2020041738

PATIENT
  Age: 77 Year
  Sex: Male
  Weight: 69.5 kg

DRUGS (25)
  1. NESP [Concomitant]
     Active Substance: DARBEPOETIN ALFA
     Dosage: 80 MICROGRAM
     Route: 065
     Dates: end: 20190809
  2. CANDESARTAN. [Concomitant]
     Active Substance: CANDESARTAN
     Indication: HYPERTENSION
     Dosage: 8 MILLIGRAM, QD
     Route: 048
  3. PRECIPITATED CALCIUM CARBONATE [Concomitant]
     Active Substance: CALCIUM CARBONATE
     Indication: HYPERPHOSPHATAEMIA
     Dosage: 3000 MILLIGRAM, QD
     Route: 048
  4. FESIN [SACCHARATED IRON OXIDE] [Concomitant]
     Active Substance: IRON SUCROSE
     Dosage: 40 MILLIGRAM, QWK
     Route: 065
     Dates: start: 20191101, end: 20191220
  5. PARSABIV [Suspect]
     Active Substance: ETELCALCETIDE HYDROCHLORIDE
     Dosage: 5 MILLIGRAM, 3 TIMES/WK
     Route: 010
     Dates: start: 20190116
  6. DARBEPOETIN ALFA [Concomitant]
     Active Substance: DARBEPOETIN ALFA
     Dosage: 80 MICROGRAM, QWK
     Route: 041
     Dates: start: 20210430, end: 20210507
  7. NICORANDIL [Concomitant]
     Active Substance: NICORANDIL
     Indication: ANGINA PECTORIS
     Dosage: 15 MILLIGRAM, QD
     Route: 048
  8. PARSABIV [Suspect]
     Active Substance: ETELCALCETIDE HYDROCHLORIDE
     Indication: HYPERPARATHYROIDISM SECONDARY
     Dosage: 2.5 MILLIGRAM, 3 TIMES/WK
     Route: 010
     Dates: start: 20181114, end: 20190114
  9. DARBEPOETIN ALFA [Concomitant]
     Active Substance: DARBEPOETIN ALFA
     Dosage: 20 MICROGRAM, QWK
     Route: 041
     Dates: start: 20210716, end: 20210723
  10. RESTAMIN [DIPHENHYDRAMINE] [Concomitant]
     Indication: PRURITUS
     Dosage: UNK
     Route: 062
  11. FESIN [SACCHARATED IRON OXIDE] [Concomitant]
     Active Substance: IRON SUCROSE
     Dosage: 40 MILLIGRAM, QWK
     Route: 065
     Dates: start: 20200828, end: 20201016
  12. EQUA [Concomitant]
     Active Substance: VILDAGLIPTIN
     Indication: DIABETES MELLITUS
     Dosage: 25 MILLIGRAM, QD
     Route: 048
  13. KALIMATE [Concomitant]
     Active Substance: CALCIUM POLYSTYRENE SULFONATE
     Indication: HYPERKALAEMIA
     Dosage: 50 GRAM, QD
     Route: 048
  14. FUROSEMIDE. [Concomitant]
     Active Substance: FUROSEMIDE
     Indication: CHRONIC KIDNEY DISEASE
     Dosage: 60 MILLIGRAM, QD
     Route: 048
  15. FESIN [SACCHARATED IRON OXIDE] [Concomitant]
     Active Substance: IRON SUCROSE
     Dosage: 40 MILLIGRAM, QWK
     Route: 065
     Dates: start: 20200515, end: 20200703
  16. DARBEPOETIN ALFA [Concomitant]
     Active Substance: DARBEPOETIN ALFA
     Indication: NEPHROGENIC ANAEMIA
     Dosage: 80 MICROGRAM, QWK
     Route: 041
     Dates: start: 20190816, end: 20200904
  17. DARBEPOETIN ALFA [Concomitant]
     Active Substance: DARBEPOETIN ALFA
     Dosage: 20 MICROGRAM, QWK
     Route: 041
     Dates: start: 20210528, end: 20210604
  18. DARBEPOETIN ALFA [Concomitant]
     Active Substance: DARBEPOETIN ALFA
     Dosage: 40 MICROGRAM, QWK
     Route: 041
     Dates: start: 20210813
  19. FESIN [SACCHARATED IRON OXIDE] [Concomitant]
     Active Substance: IRON SUCROSE
     Dosage: 40 MILLIGRAM, QWK
     Route: 065
     Dates: start: 20190308, end: 20190329
  20. DARBEPOETIN ALFA [Concomitant]
     Active Substance: DARBEPOETIN ALFA
     Dosage: 60 MICROGRAM, QWK
     Route: 041
     Dates: start: 20210514, end: 20210521
  21. OXAROL [Concomitant]
     Active Substance: MAXACALCITOL
     Indication: HYPERPARATHYROIDISM SECONDARY
     Dosage: 2.5 MICROGRAM, 3 TIMES/WK
  22. RIONA [Concomitant]
     Active Substance: FERRIC CITRATE ANHYDROUS
     Indication: HYPERPHOSPHATAEMIA
     Dosage: 750 MILLIGRAM, QD
     Route: 048
     Dates: start: 20201225
  23. DARBEPOETIN ALFA [Concomitant]
     Active Substance: DARBEPOETIN ALFA
     Dosage: 100 MICROGRAM, QWK
     Route: 041
     Dates: start: 20210326, end: 20210423
  24. DARBEPOETIN ALFA [Concomitant]
     Active Substance: DARBEPOETIN ALFA
     Dosage: 120 MICROGRAM, QWK
     Route: 041
     Dates: start: 20200911, end: 20210219
  25. DARBEPOETIN ALFA [Concomitant]
     Active Substance: DARBEPOETIN ALFA
     Dosage: 30 MICROGRAM, QWK
     Route: 041
     Dates: start: 20210730, end: 20210806

REACTIONS (2)
  - Bile duct stone [Recovered/Resolved]
  - Peripheral arterial occlusive disease [Recovering/Resolving]

NARRATIVE: CASE EVENT DATE: 20200217
